FAERS Safety Report 7990398-X (Version None)
Quarter: 2011Q4

REPORT INFORMATION
  Report Type: 
  Country: None (occurrence: None)
  Receive Date: 20111219
  Receipt Date: 20110906
  Transmission Date: 20120403
  Serious: No
  Sender: FDA-Public Use
  Company Number: US-ASTRAZENECA-2011SE40048

PATIENT
  Age: 24488 Day
  Sex: Female
  Weight: 76.2 kg

DRUGS (14)
  1. CRESTOR [Suspect]
     Indication: HYPERLIPIDAEMIA
     Route: 048
     Dates: start: 20110613, end: 20110722
  2. BEYETTA [Concomitant]
  3. GLUCOSAMINE [Concomitant]
  4. SYNTHROID [Concomitant]
  5. METONIX [Concomitant]
  6. ASPIRIN [Concomitant]
  7. FISH OIL [Concomitant]
  8. NASONEX [Concomitant]
  9. PROLIA [Concomitant]
  10. METFORMIN HCL [Concomitant]
  11. CALCIUM [Concomitant]
  12. VIT E D C MULTI [Concomitant]
  13. NORVASC [Concomitant]
  14. NEXIUM [Concomitant]

REACTIONS (4)
  - VIRAL INFECTION [None]
  - DRUG DOSE OMISSION [None]
  - ASTHENIA [None]
  - PAIN IN EXTREMITY [None]
